FAERS Safety Report 13429564 (Version 2)
Quarter: 2018Q2

REPORT INFORMATION
  Report Type: Spontaneous
  Country: US (occurrence: US)
  Receive Date: 20170411
  Receipt Date: 20180626
  Transmission Date: 20180711
  Serious: Yes (Hospitalization, Other)
  Sender: FDA-Public Use
  Company Number: US-GLENMARK PHARMACEUTICALS-2017GMK027076

PATIENT
  Age: 19 Year
  Sex: Male

DRUGS (1)
  1. GABAPENTIN. [Suspect]
     Active Substance: GABAPENTIN
     Indication: PRODUCT USED FOR UNKNOWN INDICATION
     Dosage: 20 DF, 300 MG TABLETS (6000 MG IN TOTAL)
     Route: 048

REACTIONS (9)
  - Tachyphrenia [Recovered/Resolved]
  - Blood pressure increased [Unknown]
  - Heart rate increased [Unknown]
  - Paranoia [Recovered/Resolved]
  - Hallucination [Recovered/Resolved]
  - Agitation [Recovered/Resolved]
  - Delirium [Recovered/Resolved]
  - Rhabdomyolysis [Unknown]
  - Intentional overdose [Recovered/Resolved]
